FAERS Safety Report 26211335 (Version 1)
Quarter: 2025Q4

REPORT INFORMATION
  Report Type: Spontaneous
  Country: US (occurrence: US)
  Receive Date: 20251230
  Receipt Date: 20251230
  Transmission Date: 20260118
  Serious: No
  Sender: SANOFI AVENTIS
  Company Number: US-SA-2025SA387907

PATIENT
  Sex: Male
  Weight: 15 kg

DRUGS (1)
  1. DUPIXENT [Suspect]
     Active Substance: DUPILUMAB
     Indication: Dermatitis
     Dosage: 200 MG, Q4W
     Route: 058

REACTIONS (3)
  - Dermatitis [Unknown]
  - Product dose omission issue [Unknown]
  - Product use in unapproved indication [Unknown]
